FAERS Safety Report 10844819 (Version 1)
Quarter: 2015Q1

REPORT INFORMATION
  Report Type: Report from Study
  Country: US (occurrence: US)
  Receive Date: 20150220
  Receipt Date: 20150220
  Transmission Date: 20150721
  Serious: Yes (Other)
  Sender: FDA-Public Use
  Company Number: US-GILEAD-2015-0134303

PATIENT
  Age: 68 Year
  Sex: Female

DRUGS (3)
  1. CEFTAZIDIME. [Concomitant]
     Active Substance: CEFTAZIDIME
  2. AZTREONAM LYSINE [Suspect]
     Active Substance: AZTREONAM LYSINE
     Indication: CYSTIC FIBROSIS
     Dosage: 75 MG, UNK
     Route: 055
     Dates: start: 20101101
  3. TOBI [Concomitant]
     Active Substance: TOBRAMYCIN

REACTIONS (3)
  - Off label use [Unknown]
  - Infective pulmonary exacerbation of cystic fibrosis [Unknown]
  - Productive cough [Unknown]

NARRATIVE: CASE EVENT DATE: 2014
